FAERS Safety Report 5071282-0 (Version None)
Quarter: 2006Q3

REPORT INFORMATION
  Report Type: 
  Country: None (occurrence: None)
  Receive Date: 20060804
  Receipt Date: 20041012
  Transmission Date: 20061208
  Serious: Yes (Hospitalization, Disabling)
  Sender: FDA-Public Use
  Company Number: JP-ROCHE-383714

PATIENT
  Age: 67 Year
  Sex: Male

DRUGS (12)
  1. PEGASYS [Suspect]
     Route: 058
     Dates: start: 20040922, end: 20040929
  2. PEGASYS [Suspect]
     Route: 058
     Dates: start: 20041007, end: 20041007
  3. PEGASYS [Suspect]
     Route: 058
     Dates: start: 20041021, end: 20041021
  4. PEGASYS [Suspect]
     Route: 058
     Dates: start: 20041104, end: 20041111
  5. PEGASYS [Suspect]
     Route: 058
     Dates: start: 20041124, end: 20041124
  6. GASTROM [Concomitant]
     Indication: HEPATITIS C
     Route: 048
  7. ZANTAC [Concomitant]
     Route: 048
  8. ADALAT [Concomitant]
     Route: 048
  9. DIOVAN [Concomitant]
     Route: 048
  10. DEPAKENE [Concomitant]
     Route: 048
     Dates: start: 20041208, end: 20041208
  11. PROHEPARUM [Concomitant]
     Route: 048
  12. BLOPRESS [Concomitant]
     Route: 048

REACTIONS (4)
  - CEREBRAL HAEMORRHAGE [None]
  - CONVULSION [None]
  - FALL [None]
  - PLATELET COUNT DECREASED [None]
